FAERS Safety Report 9501615 (Version 1)
Quarter: 2013Q1

REPORT INFORMATION
  Report Type: Spontaneous
  Country: US (occurrence: None)
  Receive Date: 20130107
  Receipt Date: 20130107
  Transmission Date: 20140127
  Serious: Yes (Disabling)
  Sender: FDA-Public Use
  Company Number: PHEH2012US021048

PATIENT
  Sex: Female

DRUGS (6)
  1. GILENYA [Suspect]
     Indication: MULTIPLE SCLEROSIS
     Route: 048
     Dates: start: 20120813
  2. CLONAZEPAM (CLONAZEPAM) (CLONAZEPAM) [Concomitant]
  3. CRYSELLE (ETHINYLESTRADIOL, NORGESTREL) [Concomitant]
  4. LEXAPRO (ESCITALOPRAM OXALATE) [Concomitant]
  5. METFORMIN (METFORMIN) [Concomitant]
  6. MULTIVITAMIN (ASCORBIC ACID, CALCIUM PANTOTHENATE, ERGOCALCIFEROL, NICOTINAMIDE, PYRIDOXINE HYDROCHLORIDE, RETINOL, RIBOFLAVIN, THIAMINE HYDROCHLORIDE) [Concomitant]

REACTIONS (11)
  - Multiple sclerosis relapse [None]
  - Memory impairment [None]
  - Disturbance in attention [None]
  - Amnesia [None]
  - Urinary incontinence [None]
  - Pain [None]
  - Depression [None]
  - Anxiety [None]
  - Fatigue [None]
  - Headache [None]
  - Vision blurred [None]
